FAERS Safety Report 8556424 (Version 3)
Quarter: 2014Q3

REPORT INFORMATION
  Report Type: Spontaneous
  Country: US (occurrence: US)
  Receive Date: 20120510
  Receipt Date: 20140804
  Transmission Date: 20150326
  Serious: Yes (Hospitalization)
  Sender: FDA-Public Use
  Company Number: US-BAYER-2012-045739

PATIENT
  Age: 28 Year
  Sex: Female
  Weight: 61.22 kg

DRUGS (6)
  1. TOPICAL OINTMENT [Concomitant]
  2. ANALGESICS [Concomitant]
     Active Substance: UNSPECIFIED INGREDIENT
     Indication: MIGRAINE
  3. ZYRTEC [Concomitant]
     Active Substance: CETIRIZINE HYDROCHLORIDE
  4. OCELLA [Suspect]
     Active Substance: DROSPIRENONE\ETHINYL ESTRADIOL
     Dosage: UNK
     Route: 048
     Dates: start: 200901, end: 200902
  5. ASPIRIN. [Concomitant]
     Active Substance: ASPIRIN
  6. BENADRYL [Concomitant]
     Active Substance: DIPHENHYDRAMINE HYDROCHLORIDE

REACTIONS (8)
  - Cerebrovascular accident [None]
  - Anxiety [None]
  - Anhedonia [None]
  - Quality of life decreased [None]
  - Injury [None]
  - Pain [None]
  - Migraine [None]
  - Fear [None]
